FAERS Safety Report 21116675 (Version 3)
Quarter: 2022Q3

REPORT INFORMATION
  Report Type: Spontaneous
  Country: US (occurrence: US)
  Receive Date: 20220722
  Receipt Date: 20220823
  Transmission Date: 20221026
  Serious: Yes (Other)
  Sender: FDA-Public Use
  Company Number: US-PFIZER INC-202200995747

PATIENT
  Age: 78 Year
  Sex: Female
  Weight: 82.1 kg

DRUGS (1)
  1. IBRANCE [Suspect]
     Active Substance: PALBOCICLIB
     Indication: Breast cancer
     Dosage: TOOK 1 TABLET DAILY FOR 21 DAYS IN CYCLE

REACTIONS (1)
  - Neuropathy peripheral [Unknown]
